FAERS Safety Report 8150021 (Version 3)
Quarter: 2013Q4

REPORT INFORMATION
  Report Type: Spontaneous
  Country: US (occurrence: US)
  Receive Date: 20110922
  Receipt Date: 20131114
  Transmission Date: 20140711
  Serious: Yes (Hospitalization)
  Sender: FDA-Public Use
  Company Number: US-GLAXOSMITHKLINE-A0915647A

PATIENT
  Age: 59 Year
  Sex: Female
  Weight: 75.9 kg

DRUGS (2)
  1. AVANDIA [Suspect]
     Indication: DIABETES MELLITUS
     Dosage: 4MG PER DAY
     Route: 048
     Dates: start: 200205, end: 200406
  2. AVANDAMET [Suspect]
     Indication: DIABETES MELLITUS
     Route: 048
     Dates: start: 200407, end: 200702

REACTIONS (3)
  - Cerebrovascular accident [Not Recovered/Not Resolved]
  - Cardiovascular disorder [Unknown]
  - Cardiac disorder [Unknown]
